FAERS Safety Report 14687434 (Version 1)
Quarter: 2018Q1

REPORT INFORMATION
  Report Type: Spontaneous
  Country: JP (occurrence: JP)
  Receive Date: 20180328
  Receipt Date: 20180328
  Transmission Date: 20180509
  Serious: Yes (Hospitalization)
  Sender: FDA-Public Use
  Company Number: JP-UNICHEM PHARMACEUTICALS (USA) INC-UCM201803-000071

PATIENT
  Age: 84 Year
  Sex: Female

DRUGS (4)
  1. YOKUKANSAN [Suspect]
     Active Substance: HERBALS
     Indication: DEMENTIA ALZHEIMER^S TYPE
  2. MEMANTINE. [Suspect]
     Active Substance: MEMANTINE
     Indication: DEMENTIA ALZHEIMER^S TYPE
  3. CHLORPROMAZINE HYDROCHLORIDE. [Concomitant]
     Active Substance: CHLORPROMAZINE HYDROCHLORIDE
  4. ASPIRIN. [Concomitant]
     Active Substance: ASPIRIN

REACTIONS (2)
  - Jaundice [Recovered/Resolved]
  - Hepatotoxicity [Recovered/Resolved]
